FAERS Safety Report 17740262 (Version 1)
Quarter: 2020Q2

REPORT INFORMATION
  Report Type: Spontaneous
  Country: US (occurrence: US)
  Receive Date: 20200502
  Receipt Date: 20200502
  Transmission Date: 20200714
  Serious: Yes (Hospitalization)
  Sender: FDA-Public Use
  Company Number: None

PATIENT
  Age: 73 Year
  Sex: Female
  Weight: 70.7 kg

DRUGS (1)
  1. LENALIDOMIDE (CC-5013) [Suspect]
     Active Substance: LENALIDOMIDE
     Dates: end: 20200427

REACTIONS (4)
  - Adverse reaction [None]
  - Rash [None]
  - Glomerular filtration rate decreased [None]
  - Blood creatine increased [None]

NARRATIVE: CASE EVENT DATE: 20200427
